FAERS Safety Report 8778333 (Version 2)
Quarter: 2013Q4

REPORT INFORMATION
  Report Type: Spontaneous
  Country: US (occurrence: US)
  Receive Date: 20120911
  Receipt Date: 20131108
  Transmission Date: 20140711
  Serious: Yes (Hospitalization, Other)
  Sender: FDA-Public Use
  Company Number: US-009507513-1209USA000679

PATIENT
  Age: 46 Year
  Sex: Male

DRUGS (1)
  1. REBETOL [Suspect]
     Indication: HEPATITIS C
     Dosage: UNK
     Dates: start: 20010101, end: 200107

REACTIONS (1)
  - Chest pain [Unknown]
